FAERS Safety Report 4303279-X (Version None)
Quarter: 2004Q1

REPORT INFORMATION
  Report Type: 
  Country: None (occurrence: None)
  Receive Date: 20040223
  Receipt Date: 20040213
  Transmission Date: 20041129
  Serious: Yes (Other)
  Sender: FDA-Public Use
  Company Number: SE-JNJFOC-20040203227

PATIENT
  Sex: Male

DRUGS (1)
  1. REMICADE [Suspect]
     Indication: ANKYLOSING SPONDYLITIS
     Dosage: 5 MG/KG, INTRAVENOUS
     Route: 042
     Dates: start: 20010101

REACTIONS (2)
  - ACCIDENT [None]
  - SPINAL FRACTURE [None]
